FAERS Safety Report 8023361-3 (Version None)
Quarter: 2012Q1

REPORT INFORMATION
  Report Type: 
  Country: None (occurrence: None)
  Receive Date: 20120104
  Receipt Date: 20111222
  Transmission Date: 20120608
  Serious: Yes (Other)
  Sender: FDA-Public Use
  Company Number: DE-ELI_LILLY_AND_COMPANY-DE201111006972

PATIENT
  Age: 61 Year
  Sex: Male

DRUGS (13)
  1. KALINOR [Concomitant]
  2. MOXONIDIN [Concomitant]
  3. LERCANIDIPINE [Concomitant]
  4. BYETTA [Suspect]
     Indication: DIABETES MELLITUS
     Dosage: 5 UG, BID
     Route: 058
     Dates: start: 20111116, end: 20111118
  5. ALLOPURINOL [Concomitant]
  6. METFORMIN HCL [Concomitant]
     Dosage: 1000 MG, UNK
  7. ALPHA-LIPON [Concomitant]
  8. OLMESARTAN MEDOXOMIL [Concomitant]
  9. AQUAPHOR [Concomitant]
  10. LEVOTHYROXINE SODIUM [Concomitant]
  11. RAMIPRIL [Concomitant]
  12. CLONIDINE [Concomitant]
  13. ATORVASTATIN CALCIUM [Concomitant]

REACTIONS (4)
  - DYSURIA [None]
  - PHARYNGEAL OEDEMA [None]
  - DYSPHAGIA [None]
  - HYPERTENSION [None]
